FAERS Safety Report 13275566 (Version 1)
Quarter: 2017Q1

REPORT INFORMATION
  Report Type: Spontaneous
  Country: US (occurrence: US)
  Receive Date: 20170228
  Receipt Date: 20170228
  Transmission Date: 20170428
  Serious: No
  Sender: FDA-Public Use
  Company Number: US-TEVA-743324ACC

PATIENT
  Age: 56 Year
  Sex: Female

DRUGS (1)
  1. COPAXONE [Suspect]
     Active Substance: GLATIRAMER ACETATE
     Dates: start: 20160101

REACTIONS (6)
  - Balance disorder [Unknown]
  - Bladder disorder [Unknown]
  - Injection site mass [Unknown]
  - Chills [Unknown]
  - Flushing [Unknown]
  - Gastrointestinal disorder [Unknown]
